FAERS Safety Report 5140933-4 (Version None)
Quarter: 2006Q4

REPORT INFORMATION
  Report Type: 
  Country: None (occurrence: None)
  Receive Date: 20061025
  Receipt Date: 20061025
  Transmission Date: 20070319
  Serious: Yes (Hospitalization)
  Sender: FDA-Public Use
  Company Number: None

PATIENT
  Age: 71 Year
  Sex: Male
  Weight: 74.8435 kg

DRUGS (2)
  1. SPIRONOLACTONE [Suspect]
     Dosage: 50MG  PO  QD
     Route: 048
  2. LISINOPRIL [Suspect]
     Dosage: 40MG  PO  QD
     Route: 048

REACTIONS (1)
  - HYPERKALAEMIA [None]
